FAERS Safety Report 22265213 (Version 7)
Quarter: 2024Q4

REPORT INFORMATION
  Report Type: Spontaneous
  Country: US (occurrence: US)
  Receive Date: 20230428
  Receipt Date: 20241002
  Transmission Date: 20250115
  Serious: Yes (Other)
  Sender: PFIZER
  Company Number: US-PFIZER INC-PV202300076143

PATIENT
  Age: 73 Year
  Sex: Female

DRUGS (11)
  1. BRAFTOVI [Suspect]
     Active Substance: ENCORAFENIB
     Indication: Malignant melanoma
     Dosage: 450 MG (6X75 MG), ONCE DAILY
     Route: 048
     Dates: start: 20220928
  2. MEKTOVI [Suspect]
     Active Substance: BINIMETINIB
     Indication: Malignant melanoma
     Dosage: 45 MG (3X15MG), TWICE A DAY
     Route: 048
     Dates: start: 20220928
  3. NEURONTIN [Concomitant]
     Active Substance: GABAPENTIN
     Indication: Neuropathy peripheral
     Dosage: 100 MG, 2X/DAY
     Route: 048
  4. NEURONTIN [Concomitant]
     Active Substance: GABAPENTIN
     Indication: Generalised anxiety disorder
     Dosage: TAKE 1 CAPSULE (300 MG TOTAL), THREE TIMES DAILY AS NEEDED
     Route: 048
  5. NEURONTIN [Concomitant]
     Active Substance: GABAPENTIN
     Indication: Restless legs syndrome
  6. NORVASC [Concomitant]
     Active Substance: AMLODIPINE BESYLATE
     Indication: Hypertension
     Dosage: TAKE 1 TABLET (10 MG TOTAL) BY MOUTH ONCE DAILY
     Route: 048
  7. LIPITOR [Concomitant]
     Active Substance: ATORVASTATIN CALCIUM
     Indication: Blood cholesterol increased
     Dosage: TAKE 1 TABLET (40 MG TOTAL) BY MOUTH ONCE DAILY
     Route: 048
  8. LOMOTIL [Concomitant]
     Active Substance: ATROPINE SULFATE\DIPHENOXYLATE HYDROCHLORIDE
     Indication: Diarrhoea
     Dosage: TAKE 2 TABLETS, FOUR TIMES DAILY AS NEEDED
     Route: 048
  9. PROTONIX [Concomitant]
     Active Substance: PANTOPRAZOLE SODIUM
     Indication: Gastrooesophageal reflux disease
     Dosage: TAKE 1 TABLET (40 MG TOTAL) BY BY MOUTH ONCE DAILY.
     Route: 048
  10. ZOLOFT [Concomitant]
     Active Substance: SERTRALINE HYDROCHLORIDE
     Indication: Generalised anxiety disorder
     Dosage: TAKE 50 MG AT BEDTIME FOR 2 WEEKS
  11. ZOLOFT [Concomitant]
     Active Substance: SERTRALINE HYDROCHLORIDE
     Indication: Major depression
     Dosage: INCREASE TO 100  MG AT BEDTIME

REACTIONS (6)
  - Electrocardiogram QT prolonged [Recovering/Resolving]
  - Diarrhoea [Recovering/Resolving]
  - Wound [Recovering/Resolving]
  - Increased appetite [Unknown]
  - Weight increased [Unknown]
  - Dyspnoea [Not Recovered/Not Resolved]
